FAERS Safety Report 22364617 (Version 1)
Quarter: 2023Q2

REPORT INFORMATION
  Report Type: Spontaneous
  Country: US (occurrence: US)
  Receive Date: 20230525
  Receipt Date: 20230525
  Transmission Date: 20230721
  Serious: Yes (Hospitalization, Other)
  Sender: FDA-Public Use
  Company Number: US-SUN PHARMACEUTICAL INDUSTRIES LTD-2023R1-389992

PATIENT
  Age: 68 Year
  Sex: Female

DRUGS (1)
  1. LITHIUM [Suspect]
     Active Substance: LITHIUM
     Indication: Psychiatric symptom
     Dosage: UNK
     Route: 065

REACTIONS (3)
  - Hyperparathyroidism [Recovering/Resolving]
  - Hypothyroidism [Recovering/Resolving]
  - Sinus bradycardia [Recovering/Resolving]
